FAERS Safety Report 10019574 (Version 1)
Quarter: 2014Q1

REPORT INFORMATION
  Report Type: Spontaneous
  Country: US (occurrence: US)
  Receive Date: 20140318
  Receipt Date: 20140318
  Transmission Date: 20141002
  Serious: Yes (Hospitalization, Other)
  Sender: FDA-Public Use
  Company Number: US-ELI_LILLY_AND_COMPANY-US201403003002

PATIENT
  Sex: Female

DRUGS (11)
  1. HUMALOG LISPRO [Suspect]
     Indication: TYPE 2 DIABETES MELLITUS
     Dosage: 15 U, EACH EVENING
     Route: 065
     Dates: start: 2006
  2. HUMALOG LISPRO [Suspect]
     Dosage: 18 U, EACH EVENING
     Route: 065
  3. BENICAR [Concomitant]
  4. CRESTOR [Concomitant]
     Dosage: UNK, EACH EVENING
  5. CREON [Concomitant]
  6. SOTALOL [Concomitant]
  7. COUMADIN [Concomitant]
     Dosage: 5 MG, QOD
  8. COUMADIN [Concomitant]
     Dosage: 2.5 MG, QOD
  9. NEURONTIN [Concomitant]
  10. LANTUS [Concomitant]
  11. PLAVIX [Concomitant]

REACTIONS (13)
  - Pancreatic carcinoma [Unknown]
  - Heart rate irregular [Unknown]
  - Haemorrhage [Unknown]
  - Herpes zoster [Unknown]
  - Spinal column stenosis [Not Recovered/Not Resolved]
  - Neck injury [Unknown]
  - Fall [Recovered/Resolved]
  - Blood glucose decreased [Unknown]
  - Pancreatic cyst [Unknown]
  - Blood glucose increased [Recovered/Resolved]
  - Nephrolithiasis [Unknown]
  - Adhesion [Unknown]
  - Hypoacusis [Not Recovered/Not Resolved]
